FAERS Safety Report 6519705-1 (Version None)
Quarter: 2009Q4

REPORT INFORMATION
  Report Type: 
  Country: None (occurrence: None)
  Receive Date: 20091228
  Receipt Date: 20091216
  Transmission Date: 20100525
  Serious: Yes (Hospitalization)
  Sender: FDA-Public Use
  Company Number: FR-PFIZER INC-2009310777

PATIENT
  Age: 92 Year
  Sex: Female

DRUGS (18)
  1. ALDACTONE [Suspect]
     Dosage: 25 MG, DAILY
     Route: 048
     Dates: end: 20090524
  2. CIBACENE [Suspect]
     Dosage: 5 MG, 1X/DAY
     Route: 048
     Dates: end: 20090524
  3. LASILIX [Suspect]
     Dosage: 40 MG, 2X/DAY
     Route: 048
     Dates: end: 20090525
  4. DI-ANTALVIC [Suspect]
     Dosage: UNK
     Route: 048
     Dates: end: 20090520
  5. ADANCOR [Suspect]
     Dosage: 20 MG, 2X/DAY
     Route: 048
  6. NITRODERM [Suspect]
     Dosage: 15 MG/24H, 1X/DAY
     Route: 062
     Dates: end: 20090520
  7. CORDARONE [Concomitant]
  8. KARDEGIC [Concomitant]
  9. KALEORID [Concomitant]
  10. AERIUS [Concomitant]
  11. PLAVIX [Concomitant]
  12. PARIET [Concomitant]
  13. DOMPERIDONE [Concomitant]
  14. LEGALON [Concomitant]
  15. CACIT D3 [Concomitant]
  16. DAFLON [Concomitant]
  17. EUPHYLLINE [Concomitant]
  18. PULMICORT [Concomitant]

REACTIONS (5)
  - DEHYDRATION [None]
  - FALL [None]
  - GENERAL PHYSICAL HEALTH DETERIORATION [None]
  - HYPOTENSION [None]
  - RENAL FAILURE [None]
